FAERS Safety Report 8513358 (Version 2)
Quarter: 2013Q2

REPORT INFORMATION
  Report Type: Spontaneous
  Country: US (occurrence: None)
  Receive Date: 20120312
  Receipt Date: 20120912
  Transmission Date: 20140414
  Serious: Yes (Other)
  Sender: FDA-Public Use
  Company Number: 2011SP057934

PATIENT
  Age: 40 Year
  Sex: Male

DRUGS (3)
  1. SAPHRIS [Suspect]
     Indication: SCHIZOAFFECTIVE DISORDER BIPOLAR TYPE
     Dosage: 5 MG;BID;PO ; 10 MG;BID;PO
     Route: 048
  2. KLONOPIN [Concomitant]
  3. TRILEPTAL [Concomitant]

REACTIONS (2)
  - VOMITING [None]
  - NAUSEA [None]
